FAERS Safety Report 4978217-7 (Version None)
Quarter: 2006Q2

REPORT INFORMATION
  Report Type: 
  Country: None (occurrence: None)
  Receive Date: 20060420
  Receipt Date: 20060410
  Transmission Date: 20061013
  Serious: Yes (Disabling)
  Sender: FDA-Public Use
  Company Number: US-KINGPHARMUSA00001-K200600453

PATIENT
  Age: 86 Year
  Sex: Female

DRUGS (5)
  1. ALTACE [Suspect]
     Indication: HYPERTENSION
     Dosage: UNK, UNK
     Dates: start: 20060210
  2. LOXEN [Concomitant]
  3. CORVASAL [Concomitant]
  4. LASILIX [Concomitant]
  5. CAPTOPRIL [Concomitant]
     Dates: end: 20060209

REACTIONS (4)
  - DIARRHOEA [None]
  - ELECTROLYTE IMBALANCE [None]
  - HYPOCALCAEMIA [None]
  - VOMITING [None]
